FAERS Safety Report 21985305 (Version 2)
Quarter: 2023Q1

REPORT INFORMATION
  Report Type: Report from Study
  Country: GR (occurrence: None)
  Receive Date: 20230213
  Receipt Date: 20230227
  Transmission Date: 20230417
  Serious: Yes (Hospitalization)
  Sender: FDA-Public Use
  Company Number: GR-ROCHE-3283910

PATIENT
  Age: 70 Year
  Sex: Male

DRUGS (18)
  1. CC-99282 [Suspect]
     Active Substance: CC-99282
     Indication: Diffuse large B-cell lymphoma
     Route: 048
     Dates: start: 20221027, end: 20230122
  2. RITUXIMAB [Suspect]
     Active Substance: RITUXIMAB
     Indication: Diffuse large B-cell lymphoma
     Dosage: 33.92 MILLIGRAM(S) (712.5 MILLIGRAM(S),
     Route: 042
     Dates: start: 20221027, end: 20221027
  3. RITUXIMAB [Suspect]
     Active Substance: RITUXIMAB
     Dosage: 66.66 MILLIGRAM(S) (1400 MILLIGRAM(S)
     Route: 042
     Dates: start: 20230117, end: 20230117
  4. CYCLOPHOSPHAMIDE [Suspect]
     Active Substance: CYCLOPHOSPHAMIDE
     Indication: Diffuse large B-cell lymphoma
     Dosage: 35.71 MILLIGRAM(S)/SQ. METER (750 MILLIGRAM(S)/
     Route: 041
     Dates: start: 20221027, end: 20230117
  5. DOXORUBICIN [Suspect]
     Active Substance: DOXORUBICIN
     Indication: Diffuse large B-cell lymphoma
     Dosage: 2.380 MILLIGRAM(S)/SQ. METER (50 MILLIGRAM
     Route: 041
     Dates: start: 20221027, end: 20230117
  6. VINCRISTINE [Suspect]
     Active Substance: VINCRISTINE
     Indication: Diffuse large B-cell lymphoma
     Dosage: 0.066 MILLIGRAM(S)/SQ. METER (1.4 MILLIGRAM(S)/SQ. METER,
     Route: 041
     Dates: start: 20221027, end: 20230117
  7. PREDNISONE [Suspect]
     Active Substance: PREDNISONE
     Indication: Diffuse large B-cell lymphoma
     Route: 048
     Dates: start: 20221027, end: 20230121
  8. ARIXTRA [Concomitant]
     Active Substance: FONDAPARINUX SODIUM
     Indication: Thrombosis prophylaxis
     Route: 058
     Dates: start: 20221118
  9. SULFAMETHOXAZOLE\TRIMETHOPRIM [Concomitant]
     Active Substance: SULFAMETHOXAZOLE\TRIMETHOPRIM
     Dosage: 411.4 MILLIGRAM(S) (960 MILLIGRAM(S),
     Route: 048
     Dates: start: 20221012
  10. BARACLUDE [Concomitant]
     Active Substance: ENTECAVIR
     Indication: Hepatitis B reactivation
     Route: 048
     Dates: start: 20221012
  11. DUTASTERIDE\TAMSULOSIN [Concomitant]
     Active Substance: DUTASTERIDE\TAMSULOSIN
     Indication: Benign prostatic hyperplasia
     Route: 048
     Dates: start: 20230117
  12. GRANULOCYTE COLONY-STIMULATING FACTOR NOS [Concomitant]
     Active Substance: GRANULOCYTE COLONY-STIMULATING FACTOR NOS
     Indication: Neutropenia
     Route: 058
     Dates: start: 20230115, end: 20230116
  13. GRANULOCYTE COLONY-STIMULATING FACTOR NOS [Concomitant]
     Active Substance: GRANULOCYTE COLONY-STIMULATING FACTOR NOS
     Route: 058
     Dates: start: 20230116, end: 20230116
  14. GRANULOCYTE COLONY-STIMULATING FACTOR NOS [Concomitant]
     Active Substance: GRANULOCYTE COLONY-STIMULATING FACTOR NOS
     Route: 058
     Dates: start: 20230123, end: 20230126
  15. ZOVIRAX [Concomitant]
     Active Substance: ACYCLOVIR
     Dosage: 800.0 MILLIGRAM(S) (400 MILLIGRAM(S),
     Route: 048
     Dates: start: 20221012
  16. ALLOPURINOL [Concomitant]
     Active Substance: ALLOPURINOL
     Route: 048
     Dates: start: 20221012
  17. PEGFILGRASTIM [Concomitant]
     Active Substance: PEGFILGRASTIM
  18. COMIRNATY [Concomitant]
     Active Substance: TOZINAMERAN
     Dates: start: 20220111

REACTIONS (1)
  - COVID-19 [Recovering/Resolving]

NARRATIVE: CASE EVENT DATE: 20230131
